FAERS Safety Report 4850434-6 (Version None)
Quarter: 2005Q4

REPORT INFORMATION
  Report Type: 
  Country: None (occurrence: None)
  Receive Date: 20051125
  Receipt Date: 20050526
  Transmission Date: 20060501
  Serious: Yes (Other)
  Sender: FDA-Public Use
  Company Number: 2005035070

PATIENT
  Age: 74 Year
  Sex: Male
  Weight: 77.1115 kg

DRUGS (12)
  1. TIKOSYN [Suspect]
     Indication: ATRIAL FIBRILLATION
     Dosage: SEE IMAGE
     Route: 048
     Dates: start: 20050201, end: 20050201
  2. TIKOSYN [Suspect]
     Indication: ATRIAL FIBRILLATION
     Dosage: SEE IMAGE
     Route: 048
     Dates: start: 20050101
  3. COREG [Concomitant]
  4. LASIX [Concomitant]
  5. INSPRA [Concomitant]
  6. ZOCOR [Concomitant]
  7. COZAAR [Concomitant]
  8. PAXIL [Concomitant]
  9. COUMADIN [Concomitant]
  10. DIGOXIN [Concomitant]
  11. ASPIRIN [Concomitant]
  12. NATRECOR [Concomitant]

REACTIONS (4)
  - COUGH [None]
  - DRUG INEFFECTIVE [None]
  - HEADACHE [None]
  - THIRST [None]
